FAERS Safety Report 5481156-9 (Version None)
Quarter: 2007Q4

REPORT INFORMATION
  Report Type: 
  Country: None (occurrence: None)
  Receive Date: 20071004
  Receipt Date: 20070924
  Transmission Date: 20080405
  Serious: Yes (Other)
  Sender: FDA-Public Use
  Company Number: 018770

PATIENT
  Sex: Female

DRUGS (1)
  1. CLARAVIS [Suspect]
     Indication: ACNE
     Dosage: 20 MG, QD, ORAL
     Route: 048
     Dates: start: 20060322

REACTIONS (2)
  - TREATMENT NONCOMPLIANCE [None]
  - WRIST FRACTURE [None]
